FAERS Safety Report 13698540 (Version 3)
Quarter: 2017Q3

REPORT INFORMATION
  Report Type: Spontaneous
  Country: US (occurrence: US)
  Receive Date: 20170628
  Receipt Date: 20170727
  Transmission Date: 20171127
  Serious: Yes (Disabling)
  Sender: FDA-Public Use
  Company Number: US-SAOL THERAPEUTICS-2017SAO01083

PATIENT
  Age: 42 Year
  Sex: Female

DRUGS (5)
  1. LIORESAL [Suspect]
     Active Substance: BACLOFEN
     Dosage: 34.97 ?G, \DAY
     Route: 037
     Dates: start: 20170530, end: 20170605
  2. LIORESAL [Suspect]
     Active Substance: BACLOFEN
     Dosage: 50 ?G, \DAY
     Route: 037
     Dates: start: 20170525, end: 20170530
  3. LIORESAL [Suspect]
     Active Substance: BACLOFEN
     Dosage: 29.98 ?G, \DAY
     Route: 037
     Dates: start: 20170605
  4. TRAMADOL. [Concomitant]
     Active Substance: TRAMADOL
  5. XANAX [Concomitant]
     Active Substance: ALPRAZOLAM

REACTIONS (3)
  - Gait inability [Recovered/Resolved]
  - Fall [Unknown]
  - Incontinence [Unknown]

NARRATIVE: CASE EVENT DATE: 20170525
